FAERS Safety Report 5309307-7 (Version None)
Quarter: 2007Q2

REPORT INFORMATION
  Report Type: 
  Country: None (occurrence: None)
  Receive Date: 20070424
  Receipt Date: 20070424
  Transmission Date: 20071010
  Serious: Yes (Other)
  Sender: FDA-Public Use
  Company Number: None

PATIENT
  Age: 10 Year
  Sex: Female

DRUGS (2)
  1. PHENYTOIN [Suspect]
     Indication: CONVULSION
     Dosage: 100MG 2 IN AM, 1 QHS
     Dates: start: 19640101
  2. PHENYTOIN [Suspect]
     Dosage: 30MG 2 PO QPM

REACTIONS (1)
  - PRURITUS [None]
